FAERS Safety Report 7005175-6 (Version None)
Quarter: 2010Q3

REPORT INFORMATION
  Report Type: 
  Country: None (occurrence: None)
  Receive Date: 20100920
  Receipt Date: 20100920
  Transmission Date: 20110219
  Serious: Yes (Hospitalization)
  Sender: FDA-Public Use
  Company Number: None

PATIENT
  Age: 56 Year
  Sex: Male
  Weight: 77.56 kg

DRUGS (1)
  1. HALOPERIDOL [Suspect]
     Indication: BLOOD ETHANOL
     Dosage: 5 MG BID PO
     Route: 048
     Dates: start: 20090903, end: 20090904

REACTIONS (2)
  - DYSTONIA [None]
  - PROTRUSION TONGUE [None]
